FAERS Safety Report 8765587 (Version 1)
Quarter: 2012Q4

REPORT INFORMATION
  Report Type: 
  Country: CA (occurrence: CA)
  Receive Date: 20120903
  Receipt Date: 20120903
  Transmission Date: 20130627
  Serious: Yes (Other)
  Sender: FDA-Public Use
  Company Number: CA-BRISTOL-MYERS SQUIBB COMPANY-16900458

PATIENT
  Age: 70 Year
  Sex: Male

DRUGS (11)
  1. ORENCIA [Suspect]
     Indication: RHEUMATOID ARTHRITIS
     Dosage: last inf: 22Aug12
No of inf:28
     Route: 042
     Dates: start: 20100729
  2. METHOTREXATE [Suspect]
  3. SALAZOPYRIN [Concomitant]
  4. CALCIUM [Concomitant]
  5. SYNTHROID [Concomitant]
  6. FOLIC ACID [Concomitant]
  7. MORPHINE [Concomitant]
  8. AMITRIPTYLINE [Concomitant]
  9. MIRAPEX [Concomitant]
  10. OMEPRAZOLE [Concomitant]
  11. CHLOROQUINE [Concomitant]
     Dosage: Novo-Chloroquine

REACTIONS (2)
  - Epilepsy [Unknown]
  - Cellulitis [Unknown]
